FAERS Safety Report 5399434-0 (Version None)
Quarter: 2007Q3

REPORT INFORMATION
  Report Type: 
  Country: None (occurrence: None)
  Receive Date: 20070727
  Receipt Date: 20070727
  Transmission Date: 20080115
  Serious: Yes (Other)
  Sender: FDA-Public Use
  Company Number: A0666419A

PATIENT
  Sex: Female

DRUGS (1)
  1. PHAZYME ULTRA STRENGTH SOFTGELS [Suspect]
     Indication: DRUG USE FOR UNKNOWN INDICATION
     Route: 048

REACTIONS (4)
  - ANAL DISCOMFORT [None]
  - COELIAC DISEASE [None]
  - MACULAR DEGENERATION [None]
  - RECTAL HAEMORRHAGE [None]
